FAERS Safety Report 5156961-9 (Version None)
Quarter: 2006Q4

REPORT INFORMATION
  Report Type: 
  Country: None (occurrence: None)
  Receive Date: 20061124
  Receipt Date: 20061113
  Transmission Date: 20070319
  Serious: Yes (Other)
  Sender: FDA-Public Use
  Company Number: BE-ROCHE-470996

PATIENT
  Age: 73 Year
  Sex: Female
  Weight: 60 kg

DRUGS (1)
  1. XELODA [Suspect]
     Indication: COLORECTAL CANCER
     Dosage: ONE CYCLE CORRESPONDS TO DAILY INTAKE FOR TWO WEEKS WITH ONE WEEK REST THEREAFTER.
     Route: 048
     Dates: start: 20061003, end: 20061107

REACTIONS (3)
  - CONJUNCTIVITIS [None]
  - EYE IRRITATION [None]
  - RASH MACULO-PAPULAR [None]
